FAERS Safety Report 8193022-9 (Version None)
Quarter: 2012Q1

REPORT INFORMATION
  Report Type: 
  Country: None (occurrence: None)
  Receive Date: 20120221
  Receipt Date: 20111121
  Transmission Date: 20120608
  Serious: Yes (Other)
  Sender: FDA-Public Use
  Company Number: 046240

PATIENT
  Sex: Female
  Weight: 52.2 kg

DRUGS (4)
  1. LACOSAMIDE [Suspect]
     Dosage: (100 MG BID ORAL)
     Route: 048
     Dates: start: 20111107
  2. KEPPRA [Suspect]
     Indication: COMPLEX PARTIAL SEIZURES
     Dosage: (1000 MG BID ORAL)
     Route: 048
  3. LAMICTAL [Concomitant]
  4. CELEBREX [Concomitant]

REACTIONS (4)
  - DIZZINESS [None]
  - HYPOTENSION [None]
  - CONVULSION [None]
  - HEADACHE [None]
